FAERS Safety Report 8205415-1 (Version None)
Quarter: 2012Q1

REPORT INFORMATION
  Report Type: 
  Country: None (occurrence: None)
  Receive Date: 20120313
  Receipt Date: 20120308
  Transmission Date: 20120608
  Serious: Yes (Hospitalization, Disabling, Other)
  Sender: FDA-Public Use
  Company Number: US-MERCK-1107USA02802

PATIENT
  Age: 57 Year
  Sex: Female
  Weight: 58 kg

DRUGS (3)
  1. FOSAMAX [Suspect]
     Route: 048
     Dates: start: 20010901, end: 20020301
  2. FOSAMAX [Suspect]
     Indication: OSTEOPOROSIS
     Route: 048
     Dates: start: 19950101
  3. FOSAMAX [Suspect]
     Route: 048
     Dates: start: 19990101, end: 19990101

REACTIONS (70)
  - DIVERTICULUM [None]
  - RECTAL DISCHARGE [None]
  - PYURIA [None]
  - ORAL DISORDER [None]
  - DIABETES MELLITUS INADEQUATE CONTROL [None]
  - SPONDYLOLYSIS [None]
  - MAMMOGRAM ABNORMAL [None]
  - SPINAL OSTEOARTHRITIS [None]
  - BACK PAIN [None]
  - BENIGN COLONIC NEOPLASM [None]
  - DEHYDRATION [None]
  - CATARACT [None]
  - INJURY [None]
  - HYPERSENSITIVITY [None]
  - HYPERCHOLESTEROLAEMIA [None]
  - RENAL FAILURE CHRONIC [None]
  - WEIGHT INCREASED [None]
  - NEPHROPATHY [None]
  - FRACTURE [None]
  - GAIT DISTURBANCE [None]
  - DEVICE EXTRUSION [None]
  - COLONIC POLYP [None]
  - DYSLIPIDAEMIA [None]
  - HAEMORRHOIDS [None]
  - HYPOGLYCAEMIA [None]
  - FOOT FRACTURE [None]
  - RETINAL DETACHMENT [None]
  - INTERCAPILLARY GLOMERULOSCLEROSIS [None]
  - DIABETIC RETINOPATHY [None]
  - DENTAL CARIES [None]
  - HYPERLIPIDAEMIA [None]
  - URINARY TRACT INFECTION [None]
  - VITREOUS DETACHMENT [None]
  - ROAD TRAFFIC ACCIDENT [None]
  - AORTIC ARTERIOSCLEROSIS [None]
  - ADVERSE EVENT [None]
  - MULTIPLE FRACTURES [None]
  - DIABETIC NEUROPATHY [None]
  - BLOOD POTASSIUM DECREASED [None]
  - UPPER-AIRWAY COUGH SYNDROME [None]
  - BLOOD PARATHYROID HORMONE INCREASED [None]
  - HYPERTENSION [None]
  - MELANOSIS [None]
  - EDENTULOUS [None]
  - BREAST MASS [None]
  - ANAEMIA [None]
  - BLOOD PRESSURE ORTHOSTATIC [None]
  - BONE DISORDER [None]
  - DEPRESSION [None]
  - CONSTIPATION [None]
  - HYPERPARATHYROIDISM [None]
  - POLLAKIURIA [None]
  - TOOTH DISORDER [None]
  - RETINOPATHY HYPERTENSIVE [None]
  - EAR PAIN [None]
  - BACTERIAL TEST [None]
  - ADVERSE DRUG REACTION [None]
  - HEAD INJURY [None]
  - LIMB ASYMMETRY [None]
  - OEDEMA PERIPHERAL [None]
  - CALCIUM DEFICIENCY [None]
  - FEMUR FRACTURE [None]
  - DIABETIC COMA [None]
  - DIZZINESS [None]
  - BLOOD CREATININE INCREASED [None]
  - VITAMIN D DEFICIENCY [None]
  - MELANOSIS COLI [None]
  - FATIGUE [None]
  - EYE DISORDER [None]
  - OSTEOARTHRITIS [None]
